FAERS Safety Report 21811953 (Version 1)
Quarter: 2023Q1

REPORT INFORMATION
  Report Type: Spontaneous
  Country: US (occurrence: None)
  Receive Date: 20230103
  Receipt Date: 20230103
  Transmission Date: 20230418
  Serious: Yes (Death)
  Sender: FDA-Public Use
  Company Number: None

PATIENT
  Sex: Male

DRUGS (2)
  1. LUPRON DEPOT [Suspect]
     Active Substance: LEUPROLIDE ACETATE
     Indication: Product used for unknown indication
     Dosage: 7.5 MG INTRAMUSCULAR??INJECT 1.7 MG IN THE MUSCLE EVERY MONTH
     Route: 030
     Dates: start: 20210922
  2. LUPRON DEPOT [Suspect]
     Active Substance: LEUPROLIDE ACETATE
     Dosage: FREQUENCY : MONTHLY;?
     Route: 030

REACTIONS (1)
  - Death [None]
